FAERS Safety Report 4290841-6 (Version None)
Quarter: 2004Q1

REPORT INFORMATION
  Report Type: 
  Country: None (occurrence: None)
  Receive Date: 20040211
  Receipt Date: 20031008
  Transmission Date: 20041129
  Serious: No
  Sender: FDA-Public Use
  Company Number: US-GLAXOSMITHKLINE-A0429509A

PATIENT
  Age: 29 Year
  Sex: Male

DRUGS (1)
  1. PAXIL [Suspect]
     Indication: OBSESSIVE-COMPULSIVE DISORDER
     Dosage: 20MG PER DAY
     Route: 048
     Dates: start: 20030201, end: 20031004

REACTIONS (3)
  - DIARRHOEA [None]
  - DISTURBANCE IN ATTENTION [None]
  - HYPERHIDROSIS [None]
